FAERS Safety Report 6159047-X (Version None)
Quarter: 2009Q2

REPORT INFORMATION
  Report Type: 
  Country: None (occurrence: None)
  Receive Date: 20090417
  Receipt Date: 20090407
  Transmission Date: 20091009
  Serious: Yes (Other)
  Sender: FDA-Public Use
  Company Number: US-PFIZER INC-2009155913

PATIENT
  Sex: Male
  Weight: 84 kg

DRUGS (7)
  1. ZITHROMAX [Suspect]
     Indication: BRONCHITIS
     Dosage: 500 MG, 1X/DAY
     Route: 048
     Dates: start: 20090102, end: 20090102
  2. ZITHROMAX [Suspect]
     Dosage: 250 MG, 2X/DAY
     Route: 048
     Dates: start: 20090103, end: 20090105
  3. LUPRON [Concomitant]
     Dosage: UNK
  4. HYDROCHLOROTHIAZIDE [Concomitant]
     Dosage: UNK
  5. ACETYLSALICYLIC ACID [Concomitant]
     Dosage: UNK
  6. ALL OTHER THERAPEUTIC PRODUCTS [Concomitant]
     Dosage: UNK
  7. BENADRYL [Concomitant]
     Dosage: UNK

REACTIONS (2)
  - LIP SWELLING [None]
  - SWELLING FACE [None]
